FAERS Safety Report 4726940-1 (Version None)
Quarter: 2005Q3

REPORT INFORMATION
  Report Type: 
  Country: None (occurrence: None)
  Receive Date: 20050728
  Receipt Date: 20050721
  Transmission Date: 20060218
  Serious: Yes (Death)
  Sender: FDA-Public Use
  Company Number: 200512023EU

PATIENT
  Age: 58 Year
  Sex: Male
  Weight: 105 kg

DRUGS (4)
  1. ENOXAPARIN SODIUM [Suspect]
     Indication: ACUTE CORONARY SYNDROME
     Route: 058
     Dates: start: 20030708, end: 20030709
  2. HYTRIN [Concomitant]
     Indication: BENIGN PROSTATIC HYPERPLASIA
     Route: 048
  3. CARDURA [Concomitant]
  4. LIPITOR [Concomitant]

REACTIONS (1)
  - DEATH [None]
